FAERS Safety Report 10219814 (Version 2)
Quarter: 2014Q2

REPORT INFORMATION
  Report Type: Spontaneous
  Country: MY (occurrence: MY)
  Receive Date: 20140605
  Receipt Date: 20140605
  Transmission Date: 20141212
  Serious: Yes (Other)
  Sender: FDA-Public Use
  Company Number: ALCN2014MY003231

PATIENT
  Age: 2 Year
  Sex: Female
  Weight: 8.9 kg

DRUGS (5)
  1. ISOPTO ATROPINE [Suspect]
     Indication: AMBLYOPIA
     Dosage: 1 GTT, ONCE/SINGLE
     Route: 047
     Dates: start: 20130405, end: 20130405
  2. AQUEOUS CREAM [Concomitant]
     Indication: ECZEMA
     Dosage: 1 DF, TID
     Route: 061
  3. BETAMETHASONE [Concomitant]
     Indication: ECZEMA
     Dosage: 1 DF, BID
     Route: 061
  4. CHLORPHENIRAMINE [Concomitant]
     Dosage: 0.9 MG, TID
     Route: 048
  5. CLOBETASONE [Concomitant]
     Indication: ECZEMA
     Dosage: 1 DF, PRN
     Route: 061

REACTIONS (3)
  - Pyrexia [Not Recovered/Not Resolved]
  - Eczema [Not Recovered/Not Resolved]
  - Rash pustular [Not Recovered/Not Resolved]
